FAERS Safety Report 10770803 (Version 7)
Quarter: 2015Q2

REPORT INFORMATION
  Report Type: Report from Study
  Country: CZ (occurrence: CZ)
  Receive Date: 20150206
  Receipt Date: 20150609
  Transmission Date: 20150821
  Serious: Yes (Disabling)
  Sender: FDA-Public Use
  Company Number: CZ-AMGEN-CZECT2015010736

PATIENT
  Age: 68 Year
  Sex: Female
  Weight: 84 kg

DRUGS (14)
  1. DENOSUMAB [Suspect]
     Active Substance: DENOSUMAB
     Indication: BREAST CANCER
     Dosage: UNK
     Route: 058
     Dates: start: 20110324, end: 20141127
  2. BACTROBAN                          /00753901/ [Concomitant]
     Dosage: 5 UNK, UNK
     Route: 062
     Dates: start: 20130814, end: 20130914
  3. ANOPYRIN [Concomitant]
     Active Substance: ASPIRIN
     Dosage: 100 MG, UNK
     Route: 048
     Dates: start: 2002, end: 20141222
  4. DETRALEX [Concomitant]
     Active Substance: DIOSMIN\HESPERIDIN
     Dosage: 1-2 UNK, 1-0-0
     Route: 048
     Dates: start: 20140801
  5. BRUFEN                             /00109201/ [Concomitant]
     Active Substance: IBUPROFEN
     Dosage: 400 MG, UNK
     Route: 048
     Dates: start: 20120130
  6. DOXYBENE [Concomitant]
     Dosage: UNK
     Route: 048
     Dates: start: 20130814, end: 20130828
  7. TOBRADEX [Concomitant]
     Active Substance: DEXAMETHASONE\TOBRAMYCIN
     Dosage: 3 GTT, UNK
     Route: 050
     Dates: start: 20140319, end: 20140611
  8. AMOKSIKLAV                         /00756801/ [Concomitant]
     Dosage: 1 G, UNK
     Route: 048
     Dates: start: 20141208, end: 20141218
  9. CALCICHEW D3 [Concomitant]
     Active Substance: CALCIUM\CHOLECALCIFEROL
     Dosage: 1 UNK, UNK
     Route: 048
     Dates: start: 20110324
  10. ARIMIDEX [Concomitant]
     Active Substance: ANASTROZOLE
     Indication: HORMONE REPLACEMENT THERAPY
     Dosage: UNK
     Dates: start: 201103, end: 201106
  11. DALACIN C                          /00166001/ [Concomitant]
     Dosage: 150 MG, UNK
     Route: 048
     Dates: start: 20140930, end: 20141007
  12. IBU-HEPA                           /01729901/ [Concomitant]
     Dosage: 1 UNK, UNK
     Route: 061
     Dates: start: 20141021
  13. AUGMENTIN [Concomitant]
     Active Substance: AMOXICILLIN\CLAVULANATE POTASSIUM
     Dosage: 625 MG, UNK
     Route: 048
     Dates: start: 20130920, end: 20131004
  14. FRAXIPARINE                        /01437701/ [Concomitant]
     Active Substance: NADROPARIN CALCIUM
     Dosage: 0.8 UNK, 0-0-1

REACTIONS (2)
  - Osteonecrosis of jaw [Recovered/Resolved]
  - Osteonecrosis [Recovered/Resolved]

NARRATIVE: CASE EVENT DATE: 20141208
